FAERS Safety Report 4349192-3 (Version None)
Quarter: 2004Q2

REPORT INFORMATION
  Report Type: 
  Country: None (occurrence: None)
  Receive Date: 20040428
  Receipt Date: 20030725
  Transmission Date: 20050107
  Serious: Yes (Disabling, Other)
  Sender: FDA-Public Use
  Company Number: PHEH2003US06585

PATIENT
  Age: 88 Year
  Sex: Male
  Weight: 84 kg

DRUGS (9)
  1. ASPIRIN [Concomitant]
     Dosage: 81 MG, QD
  2. VITAMIN E [Concomitant]
     Dosage: 800 IU, QD
  3. NASAL SPRAY [Concomitant]
  4. CASODEX [Concomitant]
     Dosage: 50 MG, QD
  5. EFFEXOR XR [Concomitant]
     Dosage: 37.5 MG, QD
  6. VITAMIN B-12 [Concomitant]
     Dosage: 1000 MCG, QMO
     Route: 030
  7. AREDIA [Suspect]
     Indication: METASTASES TO BONE
  8. ZOMETA [Suspect]
     Indication: METASTASES TO BONE
     Dosage: 4 MG, QMO
     Route: 042
     Dates: start: 20020523, end: 20030306
  9. ZOMETA [Suspect]
     Dosage: 4 MG, QMO
     Route: 042
     Dates: start: 20030826

REACTIONS (10)
  - ACTIVITIES OF DAILY LIVING IMPAIRED [None]
  - ARTHRALGIA [None]
  - BONE PAIN [None]
  - FALL [None]
  - HAEMOLYTIC ANAEMIA [None]
  - HAEMORRHAGE [None]
  - MALIGNANT NEOPLASM PROGRESSION [None]
  - MOBILITY DECREASED [None]
  - PROSTATE CANCER METASTATIC [None]
  - WRIST FRACTURE [None]
